FAERS Safety Report 23183557 (Version 2)
Quarter: 2023Q4

REPORT INFORMATION
  Report Type: Spontaneous
  Country: US (occurrence: US)
  Receive Date: 20231114
  Receipt Date: 20231115
  Transmission Date: 20240109
  Serious: No
  Sender: FDA-Public Use
  Company Number: US-PFIZER INC-202300355256

PATIENT
  Age: 80 Year
  Sex: Female
  Weight: 59.87 kg

DRUGS (5)
  1. PAXLOVID [Suspect]
     Active Substance: NIRMATRELVIR\RITONAVIR
     Indication: COVID-19 treatment
     Dosage: [PF-07321332 300 MG]/[RITONAVIR 100 MG]; 2X/DAY;
     Dates: start: 20231101
  2. SIMVASTATIN [Suspect]
     Active Substance: SIMVASTATIN
     Indication: Blood cholesterol increased
     Dosage: 40 MG
  3. SIMVASTATIN [Suspect]
     Active Substance: SIMVASTATIN
     Dosage: AT NIGHT
     Dates: end: 20231028
  4. SIMVASTATIN [Suspect]
     Active Substance: SIMVASTATIN
     Dosage: AT NIGHT
     Dates: start: 20231031, end: 20231101
  5. ZITHROMAX [Concomitant]
     Active Substance: AZITHROMYCIN DIHYDRATE
     Dosage: 2 DF, 2X/DAY
     Dates: start: 20231029, end: 20231029

REACTIONS (10)
  - Dizziness [Unknown]
  - Abdominal discomfort [Unknown]
  - Balance disorder [Unknown]
  - Dyspepsia [Unknown]
  - Dysgeusia [Not Recovered/Not Resolved]
  - Malaise [Unknown]
  - Nausea [Unknown]
  - Headache [Unknown]
  - Product identification number issue [Unknown]
  - Contraindicated product administered [Unknown]

NARRATIVE: CASE EVENT DATE: 20230101
